FAERS Safety Report 9883133 (Version 3)
Quarter: 2014Q4

REPORT INFORMATION
  Report Type: Spontaneous
  Country: US (occurrence: US)
  Receive Date: 20140208
  Receipt Date: 20141029
  Transmission Date: 20150529
  Serious: Yes (Hospitalization, Disabling, Other)
  Sender: FDA-Public Use
  Company Number: US-009507513-1402USA002838

PATIENT
  Sex: Female

DRUGS (2)
  1. NUVARING [Suspect]
     Active Substance: ETHINYL ESTRADIOL\ETONOGESTREL
     Indication: PRODUCT USED FOR UNKNOWN INDICATION
     Dosage: UNK
     Route: 067
     Dates: start: 200701
  2. NUVARING [Suspect]
     Active Substance: ETHINYL ESTRADIOL\ETONOGESTREL
     Dosage: UNK
     Route: 067

REACTIONS (10)
  - Headache [Unknown]
  - Depression [Unknown]
  - Cerebral venous thrombosis [Unknown]
  - Ear tube insertion [Unknown]
  - Gastrointestinal disorder [Unknown]
  - Dehydration [Unknown]
  - Weight increased [Unknown]
  - Ear operation [Unknown]
  - Haemorrhagic cerebral infarction [Unknown]
  - Mastoiditis [Unknown]

NARRATIVE: CASE EVENT DATE: 200702
